FAERS Safety Report 23604631 (Version 1)
Quarter: 2024Q1

REPORT INFORMATION
  Report Type: Spontaneous
  Country: US (occurrence: US)
  Receive Date: 20240307
  Receipt Date: 20240307
  Transmission Date: 20240410
  Serious: Yes (Other)
  Sender: FDA-Public Use
  Company Number: US-002147023-NVSC2024US045084

PATIENT
  Age: 71 Year
  Sex: Female

DRUGS (1)
  1. TRAMETINIB [Suspect]
     Active Substance: TRAMETINIB
     Indication: Xanthogranuloma
     Dosage: UNK
     Route: 065

REACTIONS (2)
  - Cardiotoxicity [Recovered/Resolved]
  - Product use in unapproved indication [Unknown]
